FAERS Safety Report 5389911-0 (Version None)
Quarter: 2007Q3

REPORT INFORMATION
  Report Type: 
  Country: None (occurrence: None)
  Receive Date: 20070718
  Receipt Date: 20070709
  Transmission Date: 20080115
  Serious: Yes (Other)
  Sender: FDA-Public Use
  Company Number: US-JNJFOC-20070406398

PATIENT
  Sex: Male
  Weight: 86.18 kg

DRUGS (11)
  1. FENTANYL TRANSDERMAL SYSTEM [Suspect]
     Route: 062
  2. FENTANYL TRANSDERMAL SYSTEM [Suspect]
     Indication: ARTHRITIS
     Route: 062
  3. FENTANYL TRANSDERMAL SYSTEM [Suspect]
     Indication: PAIN
     Route: 062
  4. ALLOPURINOL [Concomitant]
     Indication: GOUT
     Route: 048
  5. NIFEDIPINE [Concomitant]
     Indication: BLOOD PRESSURE
     Route: 048
  6. ALPRAZOLAM [Concomitant]
     Indication: NERVOUSNESS
     Route: 048
  7. ZYRTEC [Concomitant]
     Indication: MULTIPLE ALLERGIES
     Route: 048
  8. HYDROXYZINE [Concomitant]
     Indication: MULTIPLE ALLERGIES
     Route: 048
  9. LEXAPRO [Concomitant]
     Indication: DEPRESSION
     Route: 048
  10. PREVACID [Concomitant]
     Indication: GASTROOESOPHAGEAL REFLUX DISEASE
     Route: 048
  11. SYNTHROID [Concomitant]
     Indication: THYROID DISORDER
     Route: 048

REACTIONS (5)
  - ASTHENIA [None]
  - CYSTITIS [None]
  - EATING DISORDER [None]
  - SALIVARY HYPERSECRETION [None]
  - WEIGHT DECREASED [None]
